FAERS Safety Report 4417883-1 (Version None)
Quarter: 2004Q2

REPORT INFORMATION
  Report Type: 
  Country: None (occurrence: None)
  Receive Date: 20040621
  Receipt Date: 20040323
  Transmission Date: 20050107
  Serious: Yes (Other)
  Sender: FDA-Public Use
  Company Number: PHEH2004US01909

PATIENT
  Age: 84 Year
  Sex: Male
  Weight: 65.8 kg

DRUGS (12)
  1. ZOMETA [Suspect]
     Indication: PROSTATE CANCER METASTATIC
     Dosage: 4 MG, UNK, INTRAVENOUS
     Route: 042
     Dates: start: 20040210, end: 20040210
  2. KEFLEX [Suspect]
     Dosage: 500 MG, TID; ORAL
     Route: 048
     Dates: start: 20040211, end: 20040212
  3. LASIX [Concomitant]
  4. ZOCOR [Concomitant]
  5. GLIPIZIDE [Concomitant]
  6. ACTON [Concomitant]
  7. LISINOPRIL [Concomitant]
  8. ASPIRIN [Concomitant]
  9. MULTIVITAMINS (RETINOL, PANTHENOL) [Concomitant]
  10. DOXAZOSIN [Concomitant]
  11. KLOR-CON [Concomitant]
  12. BENADRYL ALLERGY (PHENYLALANINE) [Concomitant]

REACTIONS (5)
  - FATIGUE [None]
  - FLUID RETENTION [None]
  - MALAISE [None]
  - PYREXIA [None]
  - RASH GENERALISED [None]
